FAERS Safety Report 4911599-0 (Version None)
Quarter: 2006Q1

REPORT INFORMATION
  Report Type: 
  Country: None (occurrence: None)
  Receive Date: 20060214
  Receipt Date: 20060106
  Transmission Date: 20060701
  Serious: Yes (Hospitalization)
  Sender: FDA-Public Use
  Company Number: US-MERCK-0601USA00976

PATIENT
  Age: 39 Year
  Sex: Male
  Weight: 91 kg

DRUGS (4)
  1. VIOXX [Suspect]
     Indication: PLANTAR FASCIITIS
     Route: 048
     Dates: start: 20020506, end: 20030120
  2. VIOXX [Suspect]
     Route: 048
     Dates: start: 20030330, end: 20030421
  3. VIOXX [Suspect]
     Indication: TOE DEFORMITY
     Route: 048
     Dates: start: 20020506, end: 20030120
  4. VIOXX [Suspect]
     Route: 048
     Dates: start: 20030330, end: 20030421

REACTIONS (6)
  - ACUTE MYOCARDIAL INFARCTION [None]
  - ARTERIOSCLEROSIS CORONARY ARTERY [None]
  - CHEST PAIN [None]
  - CORONARY ARTERY DISEASE [None]
  - NON-CARDIAC CHEST PAIN [None]
  - WEIGHT DECREASED [None]
